FAERS Safety Report 23470630 (Version 5)
Quarter: 2024Q1

REPORT INFORMATION
  Report Type: Spontaneous
  Country: US (occurrence: US)
  Receive Date: 20240202
  Receipt Date: 20240319
  Transmission Date: 20240410
  Serious: No
  Sender: FDA-Public Use
  Company Number: US-PFIZER INC-202400012907

PATIENT

DRUGS (1)
  1. NIVESTYM [Suspect]
     Active Substance: FILGRASTIM-AAFI
     Dosage: UNK (DAILY DOSE, UNITS: 1 SHOT)
     Route: 042

REACTIONS (2)
  - Product preparation issue [Unknown]
  - Incorrect route of product administration [Unknown]
